FAERS Safety Report 24763767 (Version 1)
Quarter: 2024Q4

REPORT INFORMATION
  Report Type: Report from Study
  Country: US (occurrence: US)
  Receive Date: 20241223
  Receipt Date: 20241223
  Transmission Date: 20250114
  Serious: Yes (Hospitalization)
  Sender: ABBVIE
  Company Number: US-ABBVIE-6053514

PATIENT
  Age: 30 Year
  Sex: Male

DRUGS (1)
  1. CREON [Suspect]
     Active Substance: PANCRELIPASE AMYLASE\PANCRELIPASE LIPASE\PANCRELIPASE PROTEASE
     Indication: Product used for unknown indication
     Dosage: TOOK ONLY FOUR MONTHS
     Route: 048
     Dates: start: 2022

REACTIONS (3)
  - Alcoholism [Not Recovered/Not Resolved]
  - Pancreatic disorder [Unknown]
  - Dysphemia [Unknown]

NARRATIVE: CASE EVENT DATE: 20240101
